FAERS Safety Report 9868859 (Version 2)
Quarter: 2014Q1

REPORT INFORMATION
  Report Type: Report from Study
  Country: JP (occurrence: JP)
  Receive Date: 20140204
  Receipt Date: 20140211
  Transmission Date: 20141002
  Serious: Yes (Disabling, Other)
  Sender: FDA-Public Use
  Company Number: JP-GILEAD-2014-0093540

PATIENT
  Age: 78 Year
  Sex: Female
  Weight: 41 kg

DRUGS (10)
  1. AMBRISENTAN [Suspect]
     Indication: PULMONARY HYPERTENSION
     Dosage: 5 MG, QD
     Route: 048
     Dates: start: 20130711, end: 20130718
  2. AMBRISENTAN [Suspect]
     Dosage: 10 MG, QD
     Route: 048
     Dates: start: 20130718, end: 20131102
  3. HEPARIN [Suspect]
     Indication: PRODUCT USED FOR UNKNOWN INDICATION
     Route: 042
  4. UROKINASE [Suspect]
     Indication: PRODUCT USED FOR UNKNOWN INDICATION
     Route: 042
  5. UROKINASE [Suspect]
     Route: 042
  6. REVATIO [Concomitant]
     Indication: PULMONARY HYPERTENSION
     Route: 048
     Dates: start: 20130713
  7. BERASUS [Concomitant]
     Indication: PULMONARY HYPERTENSION
     Route: 048
     Dates: start: 20130710
  8. FUROSEMIDE [Concomitant]
     Indication: PULMONARY HYPERTENSION
     Route: 048
     Dates: start: 20130728
  9. WARFARIN [Concomitant]
     Indication: PULMONARY HYPERTENSION
     Route: 048
     Dates: start: 20130807
  10. ALDACTONE A [Concomitant]
     Indication: PULMONARY HYPERTENSION
     Route: 048
     Dates: start: 20130728

REACTIONS (1)
  - Retroperitoneal haematoma [Recovered/Resolved with Sequelae]
